FAERS Safety Report 4853273-5 (Version None)
Quarter: 2005Q4

REPORT INFORMATION
  Report Type: 
  Country: None (occurrence: None)
  Receive Date: 20051214
  Receipt Date: 20050909
  Transmission Date: 20060501
  Serious: Yes (Hospitalization, Other)
  Sender: FDA-Public Use
  Company Number: US-GLAXOSMITHKLINE-A0573962A

PATIENT
  Age: 14 Year
  Sex: Female
  Weight: 66.8 kg

DRUGS (2)
  1. LAMICTAL [Suspect]
     Dosage: 275MG SEE DOSAGE TEXT
     Route: 048
     Dates: start: 20030101
  2. PRENATAL VITAMINS [Concomitant]
     Indication: PREGNANCY
     Dosage: 1TAB PER DAY
     Route: 048
     Dates: start: 20050406, end: 20051013

REACTIONS (3)
  - DRUG EXPOSURE DURING PREGNANCY [None]
  - OVERDOSE [None]
  - SUICIDE ATTEMPT [None]
